FAERS Safety Report 9145460 (Version 1)
Quarter: 2013Q1

REPORT INFORMATION
  Report Type: Spontaneous
  Country: NO (occurrence: NO)
  Receive Date: 20130307
  Receipt Date: 20130307
  Transmission Date: 20140127
  Serious: Yes (Other)
  Sender: FDA-Public Use
  Company Number: NO-PFIZER INC-2013SP001866

PATIENT
  Sex: 0

DRUGS (3)
  1. FLUOROURACIL [Suspect]
  2. OXALIPLATIN [Suspect]
     Dosage: UNK
  3. FOLINIC ACID [Suspect]

REACTIONS (1)
  - Renal failure [Unknown]
